FAERS Safety Report 9462360 (Version 2)
Quarter: 2013Q3

REPORT INFORMATION
  Report Type: Report from Study
  Country: DE (occurrence: DE)
  Receive Date: 20130816
  Receipt Date: 20130828
  Transmission Date: 20140515
  Serious: Yes (Disabling)
  Sender: FDA-Public Use
  Company Number: DE-AMGEN-DEUNI2013057323

PATIENT
  Age: 73 Year
  Sex: Male
  Weight: 85 kg

DRUGS (9)
  1. PANITUMUMAB [Suspect]
     Indication: COLORECTAL CANCER METASTATIC
     Dosage: 400 MG/KG, Q2WK
     Route: 042
     Dates: start: 20121127
  2. FOLFIRI [Concomitant]
     Indication: RECTOSIGMOID CANCER METASTATIC
     Dosage: UNK
     Dates: start: 20111115
  3. AVASTIN [Concomitant]
     Dosage: UNK
     Dates: start: 20111115
  4. XELODA [Concomitant]
     Dosage: UNK UNK, Q2WK
     Route: 048
  5. MITOMYCIN C [Concomitant]
     Dosage: UNK
     Dates: start: 20121031, end: 20130108
  6. MINOCYCLINE [Concomitant]
     Indication: PRURITUS
     Dosage: UNK
     Dates: start: 20121127
  7. BETAMETHASONE [Concomitant]
     Indication: PRURITUS
     Dosage: UNK
     Dates: start: 20121127
  8. METROGEL [Concomitant]
     Indication: PRURITUS
     Dosage: UNK
     Dates: start: 20121127
  9. XARELTO [Concomitant]

REACTIONS (4)
  - Dermatitis acneiform [Not Recovered/Not Resolved]
  - Skin atrophy [Not Recovered/Not Resolved]
  - Anaemia [Not Recovered/Not Resolved]
  - Diarrhoea [Not Recovered/Not Resolved]
